FAERS Safety Report 8136252-4 (Version None)
Quarter: 2012Q1

REPORT INFORMATION
  Report Type: 
  Country: None (occurrence: None)
  Receive Date: 20120214
  Receipt Date: 20120130
  Transmission Date: 20120608
  Serious: Yes (Hospitalization)
  Sender: FDA-Public Use
  Company Number: CZ-JUTA GMBH-2012-02084

PATIENT
  Age: 23 Year
  Sex: Male

DRUGS (6)
  1. BIPERIDEN HYDROCHLORIDE TAB [Suspect]
  2. METHOTRIMEPRAZINE                  /00038601/ [Suspect]
  3. RISPERIDONE [Suspect]
     Indication: SCHIZOPHRENIFORM DISORDER
     Dosage: 4-6 MG DAILY X 6 DAYS
     Route: 065
     Dates: start: 20080101
  4. PROMETHAZINE [Suspect]
     Indication: SCHIZOPHRENIFORM DISORDER
     Dosage: 100-175 MG DAILY
     Route: 065
     Dates: start: 20080101
  5. RISPERIDONE [Suspect]
     Dosage: 4 MG, DAILY REINTRODUCED ON 12TH DAY OF HOSPITALIZATION
     Route: 048
  6. ZUCLOPENTHIXOL ACETATE [Suspect]

REACTIONS (7)
  - HYPOKINESIA [None]
  - EXTRAPYRAMIDAL DISORDER [None]
  - PSYCHOTIC DISORDER [None]
  - TREMOR [None]
  - DYSTONIA [None]
  - DELUSION [None]
  - ANXIETY [None]
